FAERS Safety Report 8501831 (Version 3)
Quarter: 2013Q2

REPORT INFORMATION
  Report Type: Report from Study
  Country: US (occurrence: US)
  Receive Date: 20120410
  Receipt Date: 20130513
  Transmission Date: 20140414
  Serious: Yes (Death)
  Sender: FDA-Public Use
  Company Number: US-PFIZER INC-2012086649

PATIENT
  Age: 50 Year
  Sex: Female
  Weight: 74.5 kg

DRUGS (4)
  1. NO SUBJECT DRUG [Suspect]
     Indication: CONVULSION
     Dosage: NO DOSE GIVEN
     Route: 030
  2. LYRICA [Suspect]
     Indication: CONVULSION
     Dosage: 75 MG, QHS
     Route: 048
     Dates: start: 20100521
  3. LEVETIRACETAM [Suspect]
     Indication: CONVULSION
     Dosage: 750 MG, 2X/DAY
     Route: 048
     Dates: start: 20100429
  4. DIVALPROEX [Suspect]
     Indication: CONVULSION
     Dosage: 500 MG, 5X/DAY
     Route: 048
     Dates: start: 20100412

REACTIONS (1)
  - Choking [Fatal]
